FAERS Safety Report 8412020-0 (Version None)
Quarter: 2012Q2

REPORT INFORMATION
  Report Type: 
  Country: None (occurrence: None)
  Receive Date: 20120605
  Receipt Date: 20120530
  Transmission Date: 20120825
  Serious: No
  Sender: FDA-Public Use
  Company Number: US-PFIZER INC-2012130585

PATIENT
  Sex: Female
  Weight: 75 kg

DRUGS (7)
  1. VITAMIN D [Concomitant]
     Dosage: UNK
  2. CALCIUM [Concomitant]
     Dosage: UNK
  3. MOTRIN [Concomitant]
     Indication: ARTHRITIS
     Dosage: UNK, 1X/DAY
  4. NAPROXEN (ALEVE) [Concomitant]
     Indication: ARTHRITIS
     Dosage: 220 MG, 1X/DAY
  5. FOLIC ACID [Concomitant]
     Dosage: UNK
  6. MAXALT-MLT [Concomitant]
     Indication: MIGRAINE
     Dosage: UNK, AS NEEDED
  7. PREMPRO [Suspect]
     Indication: HORMONE REPLACEMENT THERAPY
     Dosage: UNK, ONCE A DAY
     Route: 048

REACTIONS (1)
  - BREAST MASS [None]
